FAERS Safety Report 7763590-7 (Version None)
Quarter: 2011Q3

REPORT INFORMATION
  Report Type: 
  Country: None (occurrence: None)
  Receive Date: 20110920
  Receipt Date: 20110912
  Transmission Date: 20111222
  Serious: Yes (Other)
  Sender: FDA-Public Use
  Company Number: JP-BAYER-2011-081463

PATIENT
  Age: 35 Year
  Sex: Female

DRUGS (3)
  1. AVELOX [Suspect]
     Indication: SINUSITIS
     Dosage: 400 MG, QD
     Route: 048
     Dates: start: 20110905, end: 20110905
  2. CELESTAMINE TAB [Concomitant]
     Indication: RHINITIS ALLERGIC
     Dosage: DAILY DOSE 2 DF
     Route: 048
     Dates: start: 20110904, end: 20110906
  3. TALION [Concomitant]
     Indication: RHINITIS ALLERGIC
     Dosage: DAILY DOSE 20 MG
     Route: 048
     Dates: start: 20110904

REACTIONS (3)
  - FEELING ABNORMAL [None]
  - HYPOTENSION [None]
  - LOSS OF CONSCIOUSNESS [None]
